FAERS Safety Report 24976578 (Version 2)
Quarter: 2025Q2

REPORT INFORMATION
  Report Type: Report from Study
  Country: DE (occurrence: DE)
  Receive Date: 20250217
  Receipt Date: 20250418
  Transmission Date: 20250716
  Serious: Yes (Hospitalization, Other)
  Sender: EMD SERONO INC
  Company Number: DE-Merck Healthcare KGaA-2024057626

PATIENT
  Age: 10 Year
  Sex: Male

DRUGS (13)
  1. SAIZEN [Suspect]
     Active Substance: SOMATROPIN
     Indication: Growth disorder
     Dates: start: 201605, end: 20171212
  2. SAIZEN [Suspect]
     Active Substance: SOMATROPIN
     Indication: Short stature
  3. SAIZEN [Suspect]
     Active Substance: SOMATROPIN
     Dosage: DOSE WAS CHANGED TO FULL DOSE?DEVICE SERIAL NUMBER: 80903490994
     Dates: start: 20241021
  4. PREDNISOLONE [Suspect]
     Active Substance: PREDNISOLONE
     Indication: Product used for unknown indication
  5. RAPAMUNE [Suspect]
     Active Substance: SIROLIMUS
     Indication: Product used for unknown indication
  6. SANDIMMUNE [Suspect]
     Active Substance: CYCLOSPORINE
     Indication: Product used for unknown indication
  7. PRAVASTATIN [Concomitant]
     Active Substance: PRAVASTATIN
     Indication: Product used for unknown indication
  8. AMLODIPINE [Concomitant]
     Active Substance: AMLODIPINE BESYLATE
     Indication: Product used for unknown indication
  9. VALSARTAN [Concomitant]
     Active Substance: VALSARTAN
     Indication: Product used for unknown indication
  10. SODIUM BICARBONATE [Concomitant]
     Active Substance: SODIUM BICARBONATE
     Indication: Product used for unknown indication
  11. FERROUS GLYCINE SULFATE [Concomitant]
     Active Substance: FERROUS GLYCINE SULFATE
     Indication: Product used for unknown indication
  12. MAGNESIUM [Concomitant]
     Active Substance: MAGNESIUM
     Indication: Product used for unknown indication
  13. ERGOCALCIFEROL [Concomitant]
     Active Substance: ERGOCALCIFEROL
     Indication: Product used for unknown indication

REACTIONS (12)
  - Gastrointestinal disorder [Recovered/Resolved]
  - Renal impairment [Unknown]
  - Immunosuppression [Recovered/Resolved]
  - Sepsis [Recovered/Resolved]
  - Photophobia [Unknown]
  - Aphthous ulcer [Recovered/Resolved]
  - Nasopharyngitis [Recovered/Resolved]
  - Infection [Unknown]
  - Urinary tract infection [Unknown]
  - Back pain [Recovering/Resolving]
  - Headache [Not Recovered/Not Resolved]
  - Therapy interrupted [Recovered/Resolved]

NARRATIVE: CASE EVENT DATE: 20240121
